FAERS Safety Report 16876641 (Version 1)
Quarter: 2019Q4

REPORT INFORMATION
  Report Type: Spontaneous
  Country: SG (occurrence: SG)
  Receive Date: 20191002
  Receipt Date: 20191002
  Transmission Date: 20200122
  Serious: Yes (Death, Other)
  Sender: FDA-Public Use
  Company Number: SG-BAYER-2019-143946

PATIENT

DRUGS (5)
  1. LENVATINIB [Suspect]
     Active Substance: LENVATINIB
  2. STIVARGA [Suspect]
     Active Substance: REGORAFENIB
     Indication: HEPATOCELLULAR CARCINOMA
     Dosage: 80 MG DAILY
  3. NIVOLUMAB [Suspect]
     Active Substance: NIVOLUMAB
     Indication: COLORECTAL CANCER
  4. NEXAVAR [Suspect]
     Active Substance: SORAFENIB
     Indication: HEPATOCELLULAR CARCINOMA
     Dosage: LOW DOSE
  5. STIVARGA [Suspect]
     Active Substance: REGORAFENIB
     Indication: COLORECTAL CANCER

REACTIONS (5)
  - Death [Fatal]
  - Palmar-plantar erythrodysaesthesia syndrome [None]
  - Off label use [None]
  - Haematemesis [Not Recovered/Not Resolved]
  - Malaise [Not Recovered/Not Resolved]

NARRATIVE: CASE EVENT DATE: 201908
